FAERS Safety Report 9370104 (Version 1)
Quarter: 2013Q2

REPORT INFORMATION
  Report Type: Spontaneous
  Country: US (occurrence: None)
  Receive Date: 20130621
  Receipt Date: 20130621
  Transmission Date: 20140414
  Serious: Yes (Hospitalization)
  Sender: FDA-Public Use
  Company Number: 2013AP006077

PATIENT
  Age: 51 Year
  Sex: Female

DRUGS (3)
  1. GABAPENTIN [Suspect]
  2. ALCOHOL [Suspect]
  3. COCAINE [Suspect]

REACTIONS (7)
  - Delirium [None]
  - Somnolence [None]
  - Ataxia [None]
  - Drug abuse [None]
  - Drug withdrawal syndrome [None]
  - Toxicity to various agents [None]
  - Alcohol withdrawal syndrome [None]
